FAERS Safety Report 9867913 (Version 1)
Quarter: 2014Q1

REPORT INFORMATION
  Report Type: Report from Study
  Country: FR (occurrence: FR)
  Receive Date: 20140204
  Receipt Date: 20140204
  Transmission Date: 20141002
  Serious: Yes (Other)
  Sender: FDA-Public Use
  Company Number: FR-SANOFI-AVENTIS-2012SA083510

PATIENT
  Age: 49 Year
  Sex: Female
  Weight: 54.5 kg

DRUGS (8)
  1. TERIFLUNOMIDE [Suspect]
     Indication: MULTIPLE SCLEROSIS RELAPSE
     Route: 048
     Dates: start: 20120221
  2. XANAX [Concomitant]
     Route: 048
     Dates: start: 2010
  3. CERAZETTE [Concomitant]
     Dosage: DOSE:1 UNIT(S)
     Route: 048
     Dates: start: 2002
  4. ALL OTHER THERAPEUTIC PRODUCTS [Concomitant]
     Dosage: DOSE:1 UNIT(S)
     Route: 048
     Dates: start: 20120305
  5. FLUIMUCIL [Concomitant]
     Dosage: DOSE:3 UNIT(S)
     Dates: start: 20120509, end: 20120615
  6. DAFALGAN [Concomitant]
     Route: 048
     Dates: start: 20120509, end: 201207
  7. NIFLUGEL [Concomitant]
     Dates: start: 20120509, end: 201207
  8. LAMALINE [Concomitant]
     Dosage: DOSE:1 UNIT(S)
     Route: 048
     Dates: start: 20120719

REACTIONS (1)
  - Blood creatine phosphokinase increased [Recovered/Resolved]
